FAERS Safety Report 15679296 (Version 2)
Quarter: 2019Q4

REPORT INFORMATION
  Report Type: Report from Study
  Country: CA (occurrence: CA)
  Receive Date: 20181203
  Receipt Date: 20191017
  Transmission Date: 20200122
  Serious: Yes (Other)
  Sender: FDA-Public Use
  Company Number: CA-ROCHE-2223298

PATIENT
  Sex: Female

DRUGS (17)
  1. EZETIMIBE. [Concomitant]
     Active Substance: EZETIMIBE
  2. PANTOPRAZOLE [Concomitant]
     Active Substance: PANTOPRAZOLE
     Route: 048
  3. SALBUTAMOL [Concomitant]
     Active Substance: ALBUTEROL
  4. SPIRONOLACTONE. [Concomitant]
     Active Substance: SPIRONOLACTONE
  5. TYLENOL [Concomitant]
     Active Substance: ACETAMINOPHEN
     Route: 048
     Dates: start: 20190405
  6. CALCIUM [Concomitant]
     Active Substance: CALCIUM
  7. JANUMET [Concomitant]
     Active Substance: METFORMIN HYDROCHLORIDE\SITAGLIPTIN PHOSPHATE
  8. RITUXAN [Suspect]
     Active Substance: RITUXIMAB
     Indication: GLOMERULONEPHRITIS
     Route: 042
     Dates: start: 20190405
  9. CELLCEPT [Suspect]
     Active Substance: MYCOPHENOLATE MOFETIL\MYCOPHENOLATE MOFETIL HYDROCHLORIDE
     Indication: GLOMERULONEPHRITIS
     Route: 065
     Dates: start: 2018, end: 20181122
  10. FORXIGA [Concomitant]
     Active Substance: DAPAGLIFLOZIN
  11. SOLU-MEDROL [Concomitant]
     Active Substance: METHYLPREDNISOLONE SODIUM SUCCINATE
     Route: 042
     Dates: start: 20190405
  12. ATORVASTATIN [Concomitant]
     Active Substance: ATORVASTATIN
  13. GLICLAZIDE [Concomitant]
     Active Substance: GLICLAZIDE
  14. VICTOZA [Concomitant]
     Active Substance: LIRAGLUTIDE
  15. FUROSEMIDE. [Concomitant]
     Active Substance: FUROSEMIDE
     Route: 048
  16. BENADRYL [Concomitant]
     Active Substance: DIPHENHYDRAMINE HYDROCHLORIDE
     Route: 048
     Dates: start: 20190405
  17. IRBESARTAN. [Concomitant]
     Active Substance: IRBESARTAN

REACTIONS (5)
  - Off label use [Unknown]
  - Therapy partial responder [Unknown]
  - Proteinuria [Recovering/Resolving]
  - Intentional product use issue [Unknown]
  - Drug ineffective [Unknown]
